FAERS Safety Report 6715743-4 (Version None)
Quarter: 2010Q2

REPORT INFORMATION
  Report Type: 
  Country: None (occurrence: None)
  Receive Date: 20100507
  Receipt Date: 20100430
  Transmission Date: 20101027
  Serious: Yes (Hospitalization)
  Sender: FDA-Public Use
  Company Number: FR-SANOFI-AVENTIS-2010SA025054

PATIENT

DRUGS (3)
  1. TAXOTERE [Suspect]
     Route: 042
  2. CISPLATIN [Concomitant]
  3. FLUOROURACIL [Concomitant]

REACTIONS (1)
  - VOLVULUS [None]
